FAERS Safety Report 6032501-7 (Version None)
Quarter: 2009Q1

REPORT INFORMATION
  Report Type: 
  Country: None (occurrence: None)
  Receive Date: 20090109
  Receipt Date: 20081001
  Transmission Date: 20090719
  Serious: No
  Sender: FDA-Public Use
  Company Number: A0750977A

PATIENT
  Sex: Female

DRUGS (2)
  1. TYKERB [Suspect]
     Indication: DRUG USE FOR UNKNOWN INDICATION
     Dosage: 6TAB UNKNOWN
     Route: 048
     Dates: start: 20080927
  2. NAVELBINE [Suspect]
     Indication: DRUG USE FOR UNKNOWN INDICATION
     Route: 042

REACTIONS (2)
  - DIARRHOEA [None]
  - FATIGUE [None]
